FAERS Safety Report 6657259-X (Version None)
Quarter: 2010Q1

REPORT INFORMATION
  Report Type: 
  Country: None (occurrence: None)
  Receive Date: 20100325
  Receipt Date: 20100312
  Transmission Date: 20100710
  Serious: Yes (Other)
  Sender: FDA-Public Use
  Company Number: 2010SP015665

PATIENT
  Age: 36 Year
  Sex: Female

DRUGS (2)
  1. SAPHRIS [Suspect]
     Indication: BIPOLAR DISORDER
     Dosage: 5 MG;BID
  2. SAPHRIS [Suspect]
     Indication: SUICIDAL IDEATION
     Dosage: 5 MG;BID

REACTIONS (2)
  - HYPOAESTHESIA ORAL [None]
  - SUICIDAL IDEATION [None]
